FAERS Safety Report 21797242 (Version 1)
Quarter: 2022Q4

REPORT INFORMATION
  Report Type: Spontaneous
  Country: FR (occurrence: FR)
  Receive Date: 20221230
  Receipt Date: 20221230
  Transmission Date: 20230112
  Serious: Yes (Hospitalization, Disabling)
  Sender: FDA-Public Use
  Company Number: FR-SUN PHARMACEUTICAL INDUSTRIES LTD-2022RR-370858

PATIENT
  Age: 70 Year
  Sex: Female
  Weight: 96 kg

DRUGS (5)
  1. PAROXETINE [Suspect]
     Active Substance: PAROXETINE
     Indication: Mixed anxiety and depressive disorder
     Dosage: 30 MILLIGRAM, DAILY
     Route: 048
     Dates: start: 20220420
  2. PAROXETINE [Suspect]
     Active Substance: PAROXETINE
     Dosage: 1 DOSAGE FORM, DAILY
     Route: 048
     Dates: start: 2018, end: 20220416
  3. FLUINDIONE [Suspect]
     Active Substance: FLUINDIONE
     Indication: Cardiac valve prosthesis user
     Dosage: 1 DOSAGE FORM, DAILY
     Route: 048
     Dates: start: 20171217, end: 20220415
  4. LEXOMIL 6 mg [Concomitant]
     Indication: Mixed anxiety and depressive disorder
     Dosage: 1 DOSAGE FORM, UNK
     Route: 048
  5. LOSARTAN POTASSIUM [Concomitant]
     Active Substance: LOSARTAN POTASSIUM
     Indication: Hypertension
     Dosage: 1 DOSAGE FORM, UNK
     Route: 048

REACTIONS (1)
  - Spinal subdural haematoma [Recovered/Resolved with Sequelae]

NARRATIVE: CASE EVENT DATE: 20220412
